FAERS Safety Report 8551753-2 (Version None)
Quarter: 2012Q3

REPORT INFORMATION
  Report Type: 
  Country: None (occurrence: None)
  Receive Date: 20120730
  Receipt Date: 20120723
  Transmission Date: 20120928
  Serious: Yes (Other)
  Sender: FDA-Public Use
  Company Number: US-BAYER-2012-059063

PATIENT
  Age: 31 Year
  Sex: Female
  Weight: 77 kg

DRUGS (2)
  1. MULTI-VITAMINS [Concomitant]
     Indication: UNEVALUABLE EVENT
     Dosage: QD
  2. MIRENA [Suspect]
     Indication: CONTRACEPTION
     Dosage: 20 MCG/24HR, CONT
     Route: 015
     Dates: start: 20120606

REACTIONS (4)
  - OVARIAN CYST [None]
  - GENITAL HAEMORRHAGE [None]
  - ABDOMINAL PAIN LOWER [None]
  - POST PROCEDURAL HAEMORRHAGE [None]
